FAERS Safety Report 9333104 (Version 2)
Quarter: 2013Q3

REPORT INFORMATION
  Report Type: Report from Study
  Country: IT (occurrence: IT)
  Receive Date: 20130606
  Receipt Date: 20130704
  Transmission Date: 20140515
  Serious: Yes (Hospitalization)
  Sender: FDA-Public Use
  Company Number: IT-ASTRAZENECA-2013SE38227

PATIENT
  Age: 54 Year
  Sex: Female

DRUGS (16)
  1. VANDETANIB [Suspect]
     Indication: MEDULLARY THYROID CANCER
     Route: 048
     Dates: start: 20130121
  2. ROCALTROL [Concomitant]
     Indication: VITAMIN SUPPLEMENTATION
     Route: 048
  3. PRITOR PLUS [Concomitant]
     Indication: HYPERTENSION
     Dosage: MULTIPLE DRUG DAILY
     Route: 048
  4. DEXAMETHASONE [Concomitant]
     Indication: COUGH
     Route: 048
     Dates: start: 20121025, end: 20130103
  5. DEXAMETHASONE [Concomitant]
     Indication: COUGH
     Route: 048
     Dates: start: 20130121
  6. EUTIROX [Concomitant]
     Indication: HYPOTHYROIDISM
     Route: 048
     Dates: start: 20121008, end: 20130116
  7. EUTIROX [Concomitant]
     Indication: HYPOTHYROIDISM
     Route: 048
     Dates: start: 20130117
  8. KCL RETARD [Concomitant]
     Indication: HYPONATRAEMIA
     Route: 048
     Dates: start: 20130117, end: 20130120
  9. KCL RETARD [Concomitant]
     Indication: HYPONATRAEMIA
     Route: 048
     Dates: start: 20130121
  10. OMEPRAZOLE [Concomitant]
     Indication: PROPHYLAXIS AGAINST GASTROINTESTINAL ULCER
     Route: 048
     Dates: start: 20121112, end: 20130129
  11. OMEPRAZOLE [Concomitant]
     Indication: PROPHYLAXIS AGAINST GASTROINTESTINAL ULCER
     Route: 048
     Dates: start: 20130130
  12. RANITIDINE [Concomitant]
     Indication: PROPHYLAXIS
     Route: 048
     Dates: start: 20130201
  13. GAVISCON [Concomitant]
     Indication: PROPHYLAXIS
     Dosage: 1.0 UNIT SPOON TWO TIMES A DAY
     Route: 048
     Dates: start: 20130201
  14. AULIN [Concomitant]
     Indication: PAIN
     Route: 048
     Dates: start: 20130211, end: 20130212
  15. AULIN [Concomitant]
     Indication: PAIN
     Route: 048
     Dates: start: 20130213, end: 20130214
  16. AULIN [Concomitant]
     Indication: PAIN
     Route: 048
     Dates: start: 20130215

REACTIONS (1)
  - Miller Fisher syndrome [Not Recovered/Not Resolved]
